FAERS Safety Report 21639246 (Version 2)
Quarter: 2024Q4

REPORT INFORMATION
  Report Type: Report from Study
  Country: US (occurrence: US)
  Receive Date: 20221124
  Receipt Date: 20241017
  Transmission Date: 20250115
  Serious: Yes (Hospitalization, Other)
  Sender: NOVARTIS
  Company Number: US-002147023-NVSC2022US261563

PATIENT
  Age: 55 Year
  Sex: Male
  Weight: 55.3 kg

DRUGS (14)
  1. ENTRESTO [Suspect]
     Active Substance: SACUBITRIL\VALSARTAN
     Indication: Cardiomyopathy
     Dosage: UNK,BID
     Route: 048
     Dates: start: 20191227
  2. ENTRESTO [Suspect]
     Active Substance: SACUBITRIL\VALSARTAN
     Indication: Chronic left ventricular failure
     Dosage: UNK
     Route: 048
  3. TYLENOL [Concomitant]
     Active Substance: ACETAMINOPHEN
     Indication: Pain
     Dosage: TAKE 2 TABLETS (TOTAL 650MG FOR EVERY 4 HOURS AS NEEDED)
     Route: 048
     Dates: start: 20220725, end: 20220804
  4. TYLENOL [Concomitant]
     Active Substance: ACETAMINOPHEN
     Indication: Body temperature
     Dosage: REPLACES 160MG/5ML LIQUIID
     Route: 065
  5. BACLOFEN [Concomitant]
     Active Substance: BACLOFEN
     Indication: Product used for unknown indication
     Dosage: 5 MG, TID
     Route: 048
     Dates: start: 20220725, end: 20220801
  6. IMDUR [Concomitant]
     Active Substance: ISOSORBIDE MONONITRATE
     Indication: Product used for unknown indication
     Dosage: 1 DOSAGE FORM, QD
     Route: 048
     Dates: start: 20211013, end: 20220804
  7. Muscle rub [Concomitant]
     Indication: Myalgia
     Dosage: APPLY 1 APPLICATION TOPICALLY AS NEEDED
     Route: 065
     Dates: start: 20220725
  8. VITAMIN B6 [Concomitant]
     Active Substance: PYRIDOXINE HYDROCHLORIDE
     Indication: Product used for unknown indication
     Dosage: 50 MG, QD
     Route: 048
     Dates: start: 20220726, end: 20220801
  9. SENOKOT [Concomitant]
     Active Substance: SENNOSIDES
     Indication: Constipation
     Dosage: 8.6 MG, QD
     Route: 048
     Dates: start: 20220725, end: 20220801
  10. SODIUM BICARBONATE [Concomitant]
     Active Substance: SODIUM BICARBONATE
     Indication: Product used for unknown indication
     Dosage: TAKE 1 TABLET (650 MG) BY MOUTH TWO TIMES DAILY
     Route: 048
     Dates: start: 20220725, end: 20220801
  11. ALDACTONE [Concomitant]
     Active Substance: SPIRONOLACTONE
     Indication: Product used for unknown indication
     Dosage: 50 MG
     Route: 065
  12. ASPIRIN [Concomitant]
     Active Substance: ASPIRIN
     Indication: Product used for unknown indication
     Dosage: 81 MG
     Route: 065
  13. TOPROL XL [Concomitant]
     Active Substance: METOPROLOL SUCCINATE
     Indication: Product used for unknown indication
     Dosage: 100 MG, QD
     Route: 065
  14. HYDRALAZINE [Concomitant]
     Active Substance: HYDRALAZINE HYDROCHLORIDE
     Indication: Product used for unknown indication
     Dosage: UNK
     Route: 065

REACTIONS (19)
  - Cerebrovascular accident [Recovering/Resolving]
  - Cerebral arteriosclerosis [Unknown]
  - Haemorrhage intracranial [Unknown]
  - Thalamus haemorrhage [Unknown]
  - Cerebral haemorrhage [Unknown]
  - Hemiparesis [Unknown]
  - Chronic kidney disease [Unknown]
  - Basal ganglia haematoma [Unknown]
  - Hypertensive emergency [Unknown]
  - Mobility decreased [Unknown]
  - Mucosal hypertrophy [Unknown]
  - Mastoid effusion [Unknown]
  - Blood pressure abnormal [Unknown]
  - Hypoaesthesia [Unknown]
  - Paraesthesia [Unknown]
  - Essential hypertension [Unknown]
  - Gastrooesophageal reflux disease [Unknown]
  - Hypertriglyceridaemia [Unknown]
  - Very low density lipoprotein increased [Unknown]

NARRATIVE: CASE EVENT DATE: 20220428
